FAERS Safety Report 6895520-4 (Version None)
Quarter: 2010Q3

REPORT INFORMATION
  Report Type: 
  Country: None (occurrence: None)
  Receive Date: 20100802
  Receipt Date: 20100726
  Transmission Date: 20110219
  Serious: Yes (Death, Hospitalization, Other)
  Sender: FDA-Public Use
  Company Number: PHHY2010US20569

PATIENT
  Sex: Male
  Weight: 100.9 kg

DRUGS (32)
  1. EXJADE [Suspect]
     Indication: ACUTE MYELOID LEUKAEMIA
     Dosage: 2000 MG, QD
     Route: 048
     Dates: start: 20091228
  2. EXJADE [Suspect]
     Indication: IRON OVERLOAD
  3. GEMTUZUMAB [Suspect]
     Dosage: UNK
     Dates: start: 20080901
  4. GEMTUZUMAB [Suspect]
     Dosage: ON DAY 4
     Dates: start: 20100301
  5. CYTARABINE [Suspect]
     Dosage: UNK
     Dates: end: 20070701
  6. CYTARABINE [Suspect]
     Dosage: UNK
     Dates: start: 20080901
  7. CYTARABINE [Suspect]
     Dosage: 1 G/MM2, DAY 1, 2, 3
     Route: 042
     Dates: start: 20100301
  8. IDARUBICIN HCL [Suspect]
     Dosage: UNK
     Dates: end: 20070701
  9. IDARUBICIN HCL [Suspect]
     Dosage: UNK
     Dates: start: 20080901
  10. IDARUBICIN HCL [Suspect]
     Dosage: ON DAY 1, 2, + 3
     Dates: start: 20100301
  11. FLUDARABINE [Suspect]
     Dosage: ON DAY 1, 2 + 3
     Dates: start: 20100301
  12. VIDAZA [Suspect]
     Dosage: UNK
     Dates: start: 20091201
  13. ACYCLOVIR [Concomitant]
     Dosage: 400 MG, BID
     Route: 048
     Dates: start: 20080928
  14. AZITHROMYCIN [Concomitant]
  15. WELLBUTRIN [Concomitant]
  16. FOLIC ACID [Concomitant]
     Dosage: 1 MG, QD
     Route: 048
  17. MIRTAZAPINE [Concomitant]
     Dosage: 30 MG, QD EVERY DAY BEFORE SLEEP
     Route: 048
  18. MULTI-VITAMIN [Concomitant]
     Dosage: DAILY
  19. COMPAZINE [Concomitant]
  20. SENNA [Concomitant]
  21. ZANTAC [Concomitant]
     Dosage: 1 DF, QD
     Route: 048
  22. ZOLPIDEM [Concomitant]
     Dosage: 10 MG, QD EVERY DAY BEFORE SLEEP
     Route: 048
     Dates: start: 20091114
  23. CIPROFLOXACIN [Concomitant]
     Dosage: 500 MG, QD
     Route: 048
  24. RANITIDINE [Concomitant]
     Dosage: 150 MG, QD
     Route: 048
  25. BUPROPION [Concomitant]
     Dosage: 150 MG, TID
     Dates: start: 20081114
  26. PROCHLORPERAZINE [Concomitant]
     Dosage: 10 MG, PRN
     Dates: start: 20091114
  27. FLUCONAZOLE [Concomitant]
     Dosage: 100 MG DAILY
     Route: 048
  28. DOLASETRON MESYLATE [Concomitant]
     Dosage: 100 MG, PRN
     Route: 048
  29. AMOXICILLIN SODIUM W/CLAVULANATE POTASSIUM [Concomitant]
     Dosage: 875 MG, UNK
     Route: 048
  30. BLOOD TRANSFUSION, AUXILIARY PRODUCTS [Concomitant]
  31. ARA-C [Concomitant]
     Dosage: UNK
     Dates: end: 20071201
  32. ARA-C [Concomitant]
     Dosage: UNK

REACTIONS (14)
  - ACUTE MYELOID LEUKAEMIA RECURRENT [None]
  - BLAST CELL COUNT DECREASED [None]
  - BLOOD IRON INCREASED [None]
  - BONE MARROW FAILURE [None]
  - COUGH [None]
  - DEATH [None]
  - ELECTROCARDIOGRAM QT PROLONGED [None]
  - FATIGUE [None]
  - FULL BLOOD COUNT DECREASED [None]
  - ORAL DISORDER [None]
  - PANCYTOPENIA [None]
  - SINUS CONGESTION [None]
  - SINUS DISORDER [None]
  - THROMBOCYTOPENIA [None]
